FAERS Safety Report 5247302-7 (Version None)
Quarter: 2007Q1

REPORT INFORMATION
  Report Type: 
  Country: None (occurrence: None)
  Receive Date: 20070223
  Receipt Date: 20070223
  Transmission Date: 20070707
  Serious: Yes (Hospitalization)
  Sender: FDA-Public Use
  Company Number: None

PATIENT
  Age: 60 Year
  Sex: Male
  Weight: 81.6475 kg

DRUGS (2)
  1. CEFAZOLIN [Suspect]
     Indication: POSTOPERATIVE CARE
     Dosage: 1000 MG  Q8HR  IV
     Route: 042
     Dates: start: 20061209, end: 20061209
  2. CEFAZOLIN [Suspect]
     Indication: PROPHYLAXIS
     Dosage: 1000 MG  Q8HR  IV
     Route: 042
     Dates: start: 20061209, end: 20061209

REACTIONS (1)
  - RASH [None]
